FAERS Safety Report 7535823-3 (Version None)
Quarter: 2011Q2

REPORT INFORMATION
  Report Type: 
  Country: None (occurrence: None)
  Receive Date: 20110609
  Receipt Date: 20110526
  Transmission Date: 20111010
  Serious: Yes (Other)
  Sender: FDA-Public Use
  Company Number: IE-TYCO HEALTHCARE/MALLINCKRODT-T201101077

PATIENT
  Sex: Male

DRUGS (1)
  1. OPTIRAY 300 [Suspect]
     Indication: UROGRAM
     Dosage: UNK, SINGLE
     Route: 042
     Dates: start: 20110512, end: 20110512

REACTIONS (1)
  - AIR EMBOLISM [None]
